FAERS Safety Report 14867610 (Version 2)
Quarter: 2021Q2

REPORT INFORMATION
  Report Type: Report from Study
  Country: US (occurrence: US)
  Receive Date: 20180508
  Receipt Date: 20210406
  Transmission Date: 20210716
  Serious: No
  Sender: FDA-Public Use
  Company Number: PHEH2018US016216

PATIENT
  Sex: Male

DRUGS (1)
  1. ENTRESTO [Suspect]
     Active Substance: SACUBITRIL\VALSARTAN
     Indication: PRODUCT USED FOR UNKNOWN INDICATION
     Route: 048

REACTIONS (6)
  - Depression [Unknown]
  - Fall [Unknown]
  - Hypertension [Unknown]
  - Pain in extremity [Unknown]
  - Peripheral swelling [Unknown]
  - Blood pressure fluctuation [Unknown]
